FAERS Safety Report 10040786 (Version 1)
Quarter: 2014Q1

REPORT INFORMATION
  Report Type: Spontaneous
  Country: BR (occurrence: BR)
  Receive Date: 20140327
  Receipt Date: 20140327
  Transmission Date: 20141002
  Serious: Yes (Death, Other)
  Sender: FDA-Public Use
  Company Number: PHHY2014BR033092

PATIENT
  Age: 37 Year
  Sex: Female

DRUGS (3)
  1. DOXYCYCLINE [Suspect]
     Dosage: UNK
  2. TILOXICAN [Suspect]
     Dosage: UNK
  3. LIDOCAINE [Suspect]
     Dosage: USING PART OF A BOTTLE OF 20 ML

REACTIONS (9)
  - Death [Fatal]
  - Cardio-respiratory arrest [Unknown]
  - Convulsion [Unknown]
  - Anaphylactic shock [Unknown]
  - Dyspnoea [Unknown]
  - Dysgeusia [Unknown]
  - Foaming at mouth [Unknown]
  - Urinary incontinence [Unknown]
  - Snoring [Unknown]
